FAERS Safety Report 15213019 (Version 1)
Quarter: 2018Q3

REPORT INFORMATION
  Report Type: Spontaneous
  Country: US (occurrence: US)
  Receive Date: 20180730
  Receipt Date: 20180730
  Transmission Date: 20181010
  Serious: Yes (Hospitalization)
  Sender: FDA-Public Use
  Company Number: US-ABBVIE-18S-163-2427849-00

PATIENT
  Age: 56 Year
  Sex: Female

DRUGS (6)
  1. TIROSINT [Suspect]
     Active Substance: LEVOTHYROXINE SODIUM
     Route: 048
     Dates: start: 20180219
  2. BUMEX [Concomitant]
     Active Substance: BUMETANIDE
     Indication: OEDEMA
  3. TIROSINT [Suspect]
     Active Substance: LEVOTHYROXINE SODIUM
     Indication: HYPOTHYROIDISM
     Route: 048
     Dates: start: 2016, end: 201801
  4. TIROSINT [Suspect]
     Active Substance: LEVOTHYROXINE SODIUM
     Route: 048
     Dates: start: 201801, end: 20180218
  5. SYNTHROID [Suspect]
     Active Substance: LEVOTHYROXINE SODIUM
     Indication: PRODUCT USED FOR UNKNOWN INDICATION
     Dosage: MULTIPLE DOSES FOR YEARS
     Route: 048
     Dates: end: 2016
  6. NEURONTIN [Concomitant]
     Active Substance: GABAPENTIN
     Indication: PAIN

REACTIONS (9)
  - Oedema peripheral [Recovered/Resolved]
  - Laboratory test abnormal [Recovered/Resolved]
  - Hypothyroidism [Recovered/Resolved]
  - Anxiety [Recovered/Resolved]
  - Feeling abnormal [Unknown]
  - Palpitations [Recovered/Resolved]
  - Pancreatitis [Unknown]
  - Hyperthyroidism [Recovered/Resolved]
  - Sjogren^s syndrome [Unknown]

NARRATIVE: CASE EVENT DATE: 2017
